FAERS Safety Report 4901420-9 (Version None)
Quarter: 2006Q1

REPORT INFORMATION
  Report Type: 
  Country: None (occurrence: None)
  Receive Date: 20060201
  Receipt Date: 20060201
  Transmission Date: 20060701
  Serious: Yes (Hospitalization)
  Sender: FDA-Public Use
  Company Number: None

PATIENT
  Age: 83 Year
  Sex: Male
  Weight: 77.1115 kg

DRUGS (2)
  1. WARFARIN 2 MG [Suspect]
     Indication: CEREBROVASCULAR ACCIDENT
     Dosage: 2 MG DAILY PO
     Route: 048
     Dates: start: 20050310, end: 20050107
  2. WARFARIN 2 MG [Suspect]
     Indication: PROCEDURAL PAIN
     Dosage: 2 MG DAILY PO
     Route: 048
     Dates: start: 20050310, end: 20050107

REACTIONS (4)
  - COAGULOPATHY [None]
  - HAEMATURIA [None]
  - OBSTRUCTION [None]
  - THROMBOSIS [None]
